FAERS Safety Report 20543640 (Version 1)
Quarter: 2022Q1

REPORT INFORMATION
  Report Type: Spontaneous
  Country: AU (occurrence: AU)
  Receive Date: 20220302
  Receipt Date: 20220302
  Transmission Date: 20220423
  Serious: Yes (Hospitalization)
  Sender: FDA-Public Use
  Company Number: AU-STRIDES ARCOLAB LIMITED-2022SP002007

PATIENT
  Age: 80 Year
  Sex: Male

DRUGS (1)
  1. TRAVOPROST [Suspect]
     Active Substance: TRAVOPROST
     Indication: Normal tension glaucoma
     Dosage: UNK, AT NIGHT TO BOTH EYES (AT BED TIME) (DROPS)
     Route: 061

REACTIONS (1)
  - Serous retinal detachment [Recovered/Resolved]
